FAERS Safety Report 24974836 (Version 1)
Quarter: 2025Q1

REPORT INFORMATION
  Report Type: Spontaneous
  Country: BR (occurrence: BR)
  Receive Date: 20250217
  Receipt Date: 20250217
  Transmission Date: 20250408
  Serious: Yes (Other)
  Sender: DR REDDYS
  Company Number: BR-DRL-SPO/BRA/24/0013213

PATIENT
  Age: 73 Year
  Sex: Female
  Weight: 70 kg

DRUGS (5)
  1. METOPROLOL [Suspect]
     Active Substance: METOPROLOL
     Indication: Tachycardia
     Dosage: AFTER BREAKFAST
     Route: 048
     Dates: start: 202312
  2. TRAZODONE HYDROCHLORIDE [Suspect]
     Active Substance: TRAZODONE HYDROCHLORIDE
     Indication: Antidepressant therapy
     Route: 065
  3. FLUXTAR [Concomitant]
     Indication: Anxiety
     Dosage: AT 9PM. ?FROM: MORE THAN 5 YEARS AGO
     Route: 065
  4. LANSOPRAZOLE [Concomitant]
     Active Substance: LANSOPRAZOLE
     Indication: Gastritis
     Route: 065
  5. GLAMIGAN [Concomitant]
     Indication: Intraocular pressure test
     Dosage: 1 APPLICATION AT NIGHT, NO DOSAGE ?FROM: 7 MONTHS AGO
     Route: 065

REACTIONS (6)
  - Arrhythmia [Recovered/Resolved]
  - Dyspnoea [Recovered/Resolved]
  - Anxiety [Recovered/Resolved]
  - Drug interaction [Recovered/Resolved]
  - Drug ineffective [Unknown]
  - Product use issue [Unknown]

NARRATIVE: CASE EVENT DATE: 20240830
